FAERS Safety Report 7492839-3 (Version None)
Quarter: 2011Q2

REPORT INFORMATION
  Report Type: 
  Country: None (occurrence: None)
  Receive Date: 20110520
  Receipt Date: 20110509
  Transmission Date: 20111010
  Serious: Yes (Other)
  Sender: FDA-Public Use
  Company Number: CN-BRISTOL-MYERS SQUIBB COMPANY-15756190

PATIENT
  Age: 41 Year
  Sex: Female

DRUGS (4)
  1. ETOPOSIDE [Suspect]
     Indication: LUNG ADENOCARCINOMA
  2. CISPLATIN [Suspect]
     Indication: LUNG ADENOCARCINOMA
  3. CARBOPLATIN [Suspect]
     Indication: LUNG ADENOCARCINOMA
  4. PACLITAXEL [Suspect]
     Indication: LUNG ADENOCARCINOMA

REACTIONS (1)
  - RECALL PHENOMENON [None]
